FAERS Safety Report 5471923-X (Version None)
Quarter: 2007Q3

REPORT INFORMATION
  Report Type: 
  Country: None (occurrence: None)
  Receive Date: 20070928
  Receipt Date: 20070917
  Transmission Date: 20080115
  Serious: Yes (Hospitalization, Other)
  Sender: FDA-Public Use
  Company Number: US-PFIZER INC-2007059152

PATIENT
  Sex: Female
  Weight: 56.7 kg

DRUGS (7)
  1. CHANTIX [Suspect]
     Indication: SMOKING CESSATION THERAPY
  2. LITHIUM [Suspect]
  3. RISPERDAL [Suspect]
  4. DEPAKOTE [Concomitant]
  5. AMBIEN [Concomitant]
  6. VALIUM [Concomitant]
  7. SYNTHROID [Concomitant]

REACTIONS (5)
  - ANTIPSYCHOTIC DRUG LEVEL BELOW THERAPEUTIC [None]
  - DRUG LEVEL DECREASED [None]
  - DYSKINESIA [None]
  - MANIA [None]
  - PSYCHOTIC DISORDER [None]
